FAERS Safety Report 19898943 (Version 1)
Quarter: 2021Q3

REPORT INFORMATION
  Report Type: Spontaneous
  Country: FR (occurrence: FR)
  Receive Date: 20210930
  Receipt Date: 20210930
  Transmission Date: 20211014
  Serious: Yes (Hospitalization)
  Sender: FDA-Public Use
  Company Number: FR-AUROBINDO-AUR-APL-2021-040742

PATIENT
  Age: 26 Year
  Sex: Female
  Weight: 84 kg

DRUGS (9)
  1. RISPERIDONE. [Suspect]
     Active Substance: RISPERIDONE
     Dosage: 6 MILLIGRAM, ONCE A DAY
     Route: 048
     Dates: start: 20210815, end: 20210816
  2. LOXAPAC [Suspect]
     Active Substance: LOXAPINE
     Dosage: 15 MILLIGRAM, 3 TIMES A DAY
     Route: 048
     Dates: start: 20210818, end: 20210818
  3. LOXAPAC [Suspect]
     Active Substance: LOXAPINE
     Indication: AGITATION
     Dosage: 15 GTT DROPS (AS NECESSARY)
     Route: 048
     Dates: start: 20210805, end: 20210808
  4. LOXAPAC [Suspect]
     Active Substance: LOXAPINE
     Dosage: 15 MILLIGRAM, TWO TIMES A DAY
     Route: 048
     Dates: start: 20210819
  5. RISPERIDONE. [Suspect]
     Active Substance: RISPERIDONE
     Indication: AGITATION
     Dosage: 4 MILLIGRAM, ONCE A DAY
     Route: 048
     Dates: start: 20210813, end: 20210814
  6. LOXAPAC [Suspect]
     Active Substance: LOXAPINE
     Dosage: 10 MILLIGRAM (AS NECESSARY)
     Route: 048
     Dates: start: 20210809, end: 20210813
  7. RISPERIDONE. [Suspect]
     Active Substance: RISPERIDONE
     Dosage: 8 MILLIGRAM, ONCE A DAY
     Route: 048
     Dates: start: 20210817, end: 20210817
  8. RISPERIDONE. [Suspect]
     Active Substance: RISPERIDONE
     Dosage: 6 MILLIGRAM, ONCE A DAY
     Route: 048
     Dates: start: 20210818
  9. LOXAPAC [Suspect]
     Active Substance: LOXAPINE
     Dosage: 15 MILLIGRAM, FOUR TIMES/DAY
     Route: 048
     Dates: start: 20210814, end: 20210817

REACTIONS (1)
  - Extrapyramidal disorder [Recovered/Resolved]

NARRATIVE: CASE EVENT DATE: 20210816
